FAERS Safety Report 10085340 (Version 1)
Quarter: 2014Q2

REPORT INFORMATION
  Report Type: Spontaneous
  Country: US (occurrence: US)
  Receive Date: 20140417
  Receipt Date: 20140417
  Transmission Date: 20141212
  Serious: No
  Sender: FDA-Public Use
  Company Number: US-009507513-1404USA001154

PATIENT
  Sex: Female

DRUGS (2)
  1. NUVARING [Suspect]
     Dosage: 1 DF, Q3W
     Route: 067
     Dates: start: 200909
  2. NUVARING [Suspect]
     Dosage: 2 DF, UNK
     Route: 067

REACTIONS (3)
  - Overdose [Unknown]
  - Product physical issue [Unknown]
  - No adverse event [Unknown]
